FAERS Safety Report 16014371 (Version 1)
Quarter: 2019Q1

REPORT INFORMATION
  Report Type: Spontaneous
  Country: AU (occurrence: AU)
  Receive Date: 20190227
  Receipt Date: 20190227
  Transmission Date: 20190418
  Serious: Yes (Other)
  Sender: FDA-Public Use
  Company Number: PHHY2019AU040072

PATIENT
  Age: 49 Year
  Sex: Female

DRUGS (1)
  1. METOPROLOL. [Suspect]
     Active Substance: METOPROLOL
     Indication: LONG QT SYNDROME
     Dosage: 75 MG, BID
     Route: 065
     Dates: start: 2016

REACTIONS (4)
  - Sleep terror [Unknown]
  - Overdose [Unknown]
  - Drug intolerance [Unknown]
  - Depression [Recovered/Resolved]
